FAERS Safety Report 4636002-X (Version None)
Quarter: 2005Q2

REPORT INFORMATION
  Report Type: 
  Country: None (occurrence: None)
  Receive Date: 20050331
  Receipt Date: 20040129
  Transmission Date: 20051028
  Serious: Yes (Other)
  Sender: FDA-Public Use
  Company Number: 200410492BCC

PATIENT
  Age: 54 Year
  Sex: Female
  Weight: 70.3075 kg

DRUGS (3)
  1. ALEVE [Suspect]
     Indication: BACK PAIN
     Dosage: 220 MG, ONCE, ORAL
     Route: 048
     Dates: start: 20040116
  2. PREVACID [Concomitant]
  3. LIDOCAINE [Concomitant]

REACTIONS (9)
  - FEELING HOT [None]
  - HYPERSENSITIVITY [None]
  - LIP DISORDER [None]
  - PARAESTHESIA [None]
  - PARAESTHESIA ORAL [None]
  - PRURITUS [None]
  - RASH MACULAR [None]
  - RASH PRURITIC [None]
  - URTICARIA [None]
